FAERS Safety Report 20973890 (Version 1)
Quarter: 2022Q2

REPORT INFORMATION
  Report Type: Spontaneous
  Country: IT (occurrence: IT)
  Receive Date: 20220617
  Receipt Date: 20220617
  Transmission Date: 20220721
  Serious: Yes (Other)
  Sender: FDA-Public Use
  Company Number: None

PATIENT
  Age: 66 Year
  Sex: Female
  Weight: 90 kg

DRUGS (1)
  1. BEOVU [Suspect]
     Active Substance: BROLUCIZUMAB-DBLL
     Indication: Age-related macular degeneration
     Dosage: 6 MG, CYCLIC
     Route: 065
     Dates: start: 20220215, end: 20220321

REACTIONS (3)
  - Macular hole [Unknown]
  - Iridocyclitis [Unknown]
  - Vitritis [Unknown]

NARRATIVE: CASE EVENT DATE: 20220412
